FAERS Safety Report 7421391-3 (Version None)
Quarter: 2011Q2

REPORT INFORMATION
  Report Type: 
  Country: None (occurrence: None)
  Receive Date: 20110418
  Receipt Date: 20110412
  Transmission Date: 20111010
  Serious: Yes (Hospitalization)
  Sender: FDA-Public Use
  Company Number: US-BRISTOL-MYERS SQUIBB COMPANY-15567472

PATIENT
  Age: 57 Year
  Sex: Male

DRUGS (12)
  1. GABAPENTIN [Concomitant]
  2. LISINOPRIL [Suspect]
     Route: 048
  3. VITAMIN D [Concomitant]
  4. NOVOLIN 70/30 [Concomitant]
  5. BLINDED: SAXAGLIPTIN [Suspect]
     Indication: TYPE 2 DIABETES MELLITUS
     Dates: start: 20101014
  6. NOVOLOG [Suspect]
     Indication: TYPE 2 DIABETES MELLITUS
     Dosage: NOVOLOG 70.30 INSULIN 50 UNITS SQ BID,IF BS LESS THAN 30UNITS SQ
  7. BLINDED: PLACEBO [Suspect]
     Indication: TYPE 2 DIABETES MELLITUS
  8. CHONDROITIN [Concomitant]
  9. CALCIUM [Concomitant]
  10. COLACE [Concomitant]
  11. GLUCOSAMINE [Concomitant]
  12. MELATONIN [Concomitant]

REACTIONS (2)
  - CHOLELITHIASIS [None]
  - PANCREATITIS [None]
